FAERS Safety Report 4422601-7 (Version None)
Quarter: 2004Q3

REPORT INFORMATION
  Report Type: 
  Country: None (occurrence: None)
  Receive Date: 20040713
  Receipt Date: 20030609
  Transmission Date: 20050211
  Serious: No
  Sender: FDA-Public Use
  Company Number: PHEH2003US04390

PATIENT
  Age: 41 Year
  Sex: Male

DRUGS (3)
  1. ELIDEL [Suspect]
     Indication: DERMATITIS
     Dosage: BID, TOPICAL
     Route: 061
     Dates: start: 20030423, end: 20030521
  2. CLARITIN [Concomitant]
  3. ALLEGRA [Concomitant]

REACTIONS (2)
  - APPLICATION SITE REACTION [None]
  - DERMATITIS CONTACT [None]
